FAERS Safety Report 9530685 (Version 2)
Quarter: 2013Q4

REPORT INFORMATION
  Report Type: Spontaneous
  Country: FR (occurrence: FR)
  Receive Date: 20130918
  Receipt Date: 20131226
  Transmission Date: 20140711
  Serious: Yes (Hospitalization, Other)
  Sender: FDA-Public Use
  Company Number: FR-ASTRAZENECA-2013SE69167

PATIENT
  Age: 33 Year
  Sex: Male
  Weight: 101 kg

DRUGS (10)
  1. XEROQUEL [Suspect]
     Indication: CHILDHOOD PSYCHOSIS
     Route: 048
     Dates: start: 20120521, end: 20120618
  2. XEROQUEL [Suspect]
     Indication: CHILDHOOD PSYCHOSIS
     Dosage: DOSE PROGRESSIVELY INCREASED
     Route: 048
  3. VALPROIC ACID [Concomitant]
  4. TERCIAN [Concomitant]
  5. NOZINAN [Concomitant]
  6. UNSPECIFIED BENZODIAZEPINE [Concomitant]
  7. UNSPECIFIED HYPNOTIC [Concomitant]
  8. LEPONEX [Concomitant]
     Indication: ABNORMAL BEHAVIOUR
     Route: 048
     Dates: start: 20120614, end: 20120620
  9. LEPONEX [Concomitant]
     Indication: ABNORMAL BEHAVIOUR
     Route: 048
     Dates: start: 20120620, end: 20120626
  10. LEPONEX [Concomitant]
     Indication: ABNORMAL BEHAVIOUR
     Route: 048

REACTIONS (3)
  - Childhood psychosis [Not Recovered/Not Resolved]
  - Agitation [Not Recovered/Not Resolved]
  - Drug dose omission [Unknown]
